FAERS Safety Report 6654133-X (Version None)
Quarter: 2010Q1

REPORT INFORMATION
  Report Type: 
  Country: None (occurrence: None)
  Receive Date: 20100326
  Receipt Date: 20100316
  Transmission Date: 20100710
  Serious: Yes (Hospitalization, Other)
  Sender: FDA-Public Use
  Company Number: FR-PFIZER INC-2009299791

PATIENT
  Age: 78 Year
  Sex: Male
  Weight: 88 kg

DRUGS (16)
  1. BLINDED *NO SUBJECT DRUG [Suspect]
     Indication: CARDIAC FAILURE
     Dosage: UNK DF, 1X/DAY
     Route: 048
     Dates: start: 20090724
  2. BLINDED *PLACEBO [Suspect]
     Indication: CARDIAC FAILURE
     Dosage: UNK DF, 1X/DAY
     Route: 048
     Dates: start: 20090724
  3. BLINDED EPLERENONE [Suspect]
     Indication: CARDIAC FAILURE
     Dosage: UNK DF, 1X/DAY
     Route: 048
     Dates: start: 20090724
  4. RAMIPRIL [Concomitant]
     Dosage: 1 DF, 1X/DAY
     Route: 048
     Dates: start: 20090819
  5. KETOPROFEN [Concomitant]
     Dosage: UNK
     Route: 048
     Dates: start: 20081204, end: 20091110
  6. DIPROSONE [Concomitant]
     Dosage: UNK
     Route: 061
     Dates: start: 20081104
  7. AERIUS [Concomitant]
     Dosage: UNK
     Dates: start: 20081215
  8. ATARAX [Concomitant]
     Dosage: UNK
     Dates: start: 20081215
  9. PARACETAMOL [Concomitant]
     Dosage: UNK
     Dates: start: 20081215
  10. PREVISCAN [Concomitant]
     Dosage: 0.75 DF, 1X/DAY
     Dates: start: 20081106
  11. HEMIGOXINE NATIVELLE [Concomitant]
     Dosage: 0.125 MG, 1X/DAY
     Dates: start: 20081106
  12. KREDEX [Concomitant]
     Dosage: 6.25 MG, 2X/DAY
     Dates: start: 20081121
  13. SPECIAFOLDINE [Concomitant]
     Dosage: 1 DF, 1X/DAY
     Dates: start: 20090101
  14. FUROSEMIDE [Concomitant]
     Dosage: 1.5 DF/ MORNING AND 1 DF/ NOON
     Dates: start: 20080723
  15. HYDROCHLOROTHIAZIDE [Concomitant]
     Dosage: UNK
     Dates: start: 20090326
  16. FORLAX [Concomitant]
     Dosage: 2 DF, 1X/DAY
     Dates: start: 20091101

REACTIONS (4)
  - CARDIAC FAILURE [None]
  - CONDITION AGGRAVATED [None]
  - INTERVERTEBRAL DISCITIS [None]
  - RENAL FAILURE [None]
